FAERS Safety Report 20518574 (Version 1)
Quarter: 2022Q1

REPORT INFORMATION
  Report Type: Spontaneous
  Country: US (occurrence: US)
  Receive Date: 20220225
  Receipt Date: 20220225
  Transmission Date: 20220424
  Serious: No
  Sender: FDA-Public Use
  Company Number: US-LANTHEUS-LMI-2021-01337

PATIENT
  Age: 49 Year
  Sex: Male
  Weight: 199 kg

DRUGS (1)
  1. DEFINITY [Suspect]
     Active Substance: PERFLUTREN
     Indication: Product used for unknown indication
     Dosage: 5 ML (DETAILS OF PREPARATION AND DILUTION WERE NOT PROVIDED)
     Route: 042

REACTIONS (3)
  - Neck pain [Recovered/Resolved]
  - Back pain [Recovered/Resolved]
  - Blood pressure increased [Recovered/Resolved]
